FAERS Safety Report 16409270 (Version 1)
Quarter: 2019Q2

REPORT INFORMATION
  Report Type: Spontaneous
  Country: CH (occurrence: CH)
  Receive Date: 20190610
  Receipt Date: 20190610
  Transmission Date: 20190711
  Serious: Yes (Life-Threatening, Hospitalization)
  Sender: FDA-Public Use
  Company Number: CH-ASTRAZENECA-2019SE83059

PATIENT
  Age: 86 Year
  Weight: 90 kg

DRUGS (6)
  1. BLOPRESS [Concomitant]
     Active Substance: CANDESARTAN CILEXETIL
     Dates: end: 20190516
  2. FORXIGA [Suspect]
     Active Substance: DAPAGLIFLOZIN
     Route: 048
     Dates: start: 20190425, end: 20190516
  3. ASPIRIN CARDIO [Concomitant]
     Active Substance: ASPIRIN
     Dates: end: 20190516
  4. DIAMICRON [Concomitant]
     Active Substance: GLICLAZIDE
     Dates: end: 20190516
  5. COLECALCIFEROL [Concomitant]
     Active Substance: CHOLECALCIFEROL
     Dates: end: 20190516
  6. METFORMIN [Concomitant]
     Active Substance: METFORMIN HYDROCHLORIDE
     Dates: end: 20190516

REACTIONS (2)
  - Dehydration [Recovering/Resolving]
  - Diabetic ketoacidosis [Recovering/Resolving]

NARRATIVE: CASE EVENT DATE: 20190517
